FAERS Safety Report 22115718 (Version 1)
Quarter: 2023Q1

REPORT INFORMATION
  Report Type: Spontaneous
  Country: US (occurrence: None)
  Receive Date: 20230320
  Receipt Date: 20230320
  Transmission Date: 20230417
  Serious: Yes (Hospitalization)
  Sender: FDA-Public Use
  Company Number: None

PATIENT
  Sex: Female

DRUGS (10)
  1. DIMETHYL FUMARATE [Suspect]
     Active Substance: DIMETHYL FUMARATE
     Indication: Multiple sclerosis
     Dosage: FREQUENCY : TWICE A DAY;?
     Route: 048
     Dates: start: 20201105
  2. BUPROPN HCL TAB XL [Concomitant]
  3. DIAZEPAM INJ [Concomitant]
  4. DIPHENHYDRAM CAP [Concomitant]
  5. DULOXETINE HYDROCHLORIDE [Concomitant]
     Active Substance: DULOXETINE HYDROCHLORIDE
  6. FUROSEMIDE SOL [Concomitant]
  7. METFORMIN TAB ER [Concomitant]
  8. PROGESTERONE INJ [Concomitant]
  9. RIZATRIPTAN TAB [Concomitant]
  10. TIZANIDINE CAP [Concomitant]

REACTIONS (5)
  - Musculoskeletal stiffness [None]
  - Muscle spasticity [None]
  - Pain [None]
  - Sensory disturbance [None]
  - Therapy interrupted [None]
